FAERS Safety Report 9950988 (Version 2)
Quarter: 2014Q1

REPORT INFORMATION
  Report Type: Report from Study
  Country: US (occurrence: US)
  Receive Date: 20140304
  Receipt Date: 20140304
  Transmission Date: 20141002
  Serious: No
  Sender: FDA-Public Use
  Company Number: US-ABBVIE-12P-163-1010830-00

PATIENT
  Age: 65 Year
  Sex: Female

DRUGS (13)
  1. HUMIRA [Suspect]
     Indication: RHEUMATOID ARTHRITIS
     Route: 058
     Dates: start: 20121107
  2. HYDROCHLOROTHIAZIDE [Concomitant]
     Indication: HYPERTENSION
  3. ATENOLOL [Concomitant]
     Indication: HYPERTENSION
  4. ATENOLOL [Concomitant]
     Indication: EXTRASYSTOLES
  5. OMEPRAZOLE [Concomitant]
     Indication: GASTROOESOPHAGEAL REFLUX DISEASE
  6. PREMARIN [Concomitant]
     Indication: HORMONE REPLACEMENT THERAPY
  7. NEURONTIN [Concomitant]
     Indication: NEURALGIA
     Dosage: 1 TAB IN THE AM AND 2-3 TABS AT BEDTIME
  8. NEURONTIN [Concomitant]
     Indication: MUSCLE SPASMS
  9. LEVOTHYROXINE [Concomitant]
     Indication: HYPOTHYROIDISM
  10. LIBRAX [Concomitant]
     Indication: DYSPEPSIA
  11. LOMODIUM [Concomitant]
     Indication: DIARRHOEA
  12. LOMODIUM [Concomitant]
     Indication: COLITIS ULCERATIVE
  13. TRAMADOL [Concomitant]
     Indication: PAIN
     Dosage: 2 TABS THREE TIMES A DAY AS NEEDED

REACTIONS (8)
  - Pyrexia [Not Recovered/Not Resolved]
  - Antinuclear antibody [Not Recovered/Not Resolved]
  - Injection site pain [Recovered/Resolved]
  - Injection site haemorrhage [Recovered/Resolved]
  - Injection site haemorrhage [Not Recovered/Not Resolved]
  - Headache [Not Recovered/Not Resolved]
  - Influenza [Not Recovered/Not Resolved]
  - Pain [Not Recovered/Not Resolved]
